FAERS Safety Report 7341696-4 (Version None)
Quarter: 2011Q1

REPORT INFORMATION
  Report Type: 
  Country: None (occurrence: None)
  Receive Date: 20110309
  Receipt Date: 20110224
  Transmission Date: 20110831
  Serious: Yes (Death)
  Sender: FDA-Public Use
  Company Number: JP-BAYER-200914868BYL

PATIENT
  Sex: Male
  Weight: 58 kg

DRUGS (13)
  1. OMEPRAL [Concomitant]
     Indication: GASTRITIS
     Dosage: DAILY DOSE 20 MG
     Route: 048
     Dates: end: 20091202
  2. MUCOSTA [Concomitant]
     Indication: GASTRITIS
     Dosage: DAILY DOSE 300 MG
     Route: 048
     Dates: end: 20091202
  3. OLMETEC [Concomitant]
     Indication: HYPERTENSION
     Dosage: DAILY DOSE 20 MG
     Route: 048
     Dates: end: 20091202
  4. ALFAROL [Concomitant]
     Indication: OSTEOPOROSIS
     Dosage: DAILY DOSE .75 ?G
     Route: 048
     Dates: end: 20091202
  5. LORCAM [Concomitant]
     Indication: PAIN
     Dosage: DAILY DOSE 12 MG
     Route: 048
     Dates: end: 20091202
  6. URSO 250 [Concomitant]
     Indication: LIVER DISORDER
     Dosage: DAILY DOSE 600 MG
     Route: 048
     Dates: end: 20091202
  7. MAGLAX [Concomitant]
     Indication: CONSTIPATION
     Dosage: DAILY DOSE 990 MG
     Route: 048
     Dates: end: 20091202
  8. GABAPENTIN [Concomitant]
     Indication: ANALGESIC INTERVENTION SUPPORTIVE THERAPY
     Dosage: DAILY DOSE 1200 MG
     Route: 048
     Dates: end: 20091202
  9. OXINORM [Concomitant]
     Indication: PAIN
     Dosage: DAILY DOSE 7.5 MG
     Route: 048
     Dates: end: 20091202
  10. MEXITIL [Concomitant]
     Indication: DIABETIC NEUROPATHY
     Dosage: DAILY DOSE 200 MG
     Route: 048
     Dates: end: 20091202
  11. NOVAMIN [Concomitant]
     Indication: NAUSEA
     Dosage: DAILY DOSE 15 MG
     Route: 048
     Dates: end: 20091202
  12. ADALAT CC [Concomitant]
     Indication: HYPERTENSION
     Dosage: DAILY DOSE 20 MG
     Route: 048
     Dates: end: 20091202
  13. NEXAVAR [Suspect]
     Indication: HEPATIC NEOPLASM MALIGNANT
     Route: 048
     Dates: start: 20091113, end: 20091202

REACTIONS (1)
  - PNEUMONIA [None]
